FAERS Safety Report 7240563-4 (Version None)
Quarter: 2011Q1

REPORT INFORMATION
  Report Type: 
  Country: None (occurrence: None)
  Receive Date: 20110120
  Receipt Date: 20110120
  Transmission Date: 20110831
  Serious: No
  Sender: FDA-Public Use
  Company Number: None

PATIENT
  Sex: Female
  Weight: 106.1417 kg

DRUGS (1)
  1. DARVOCET-N 100 [Suspect]
     Indication: ARTHRALGIA
     Dosage: WHEN I NEED IT

REACTIONS (1)
  - PALPITATIONS [None]
